FAERS Safety Report 19019401 (Version 7)
Quarter: 2021Q4

REPORT INFORMATION
  Report Type: Report from Study
  Country: US (occurrence: US)
  Receive Date: 20210316
  Receipt Date: 20211011
  Transmission Date: 20220303
  Serious: Yes (Hospitalization)
  Sender: FDA-Public Use
  Company Number: US-SEATTLE GENETICS-2021SGN01483

PATIENT
  Age: 64 Year
  Sex: Female

DRUGS (4)
  1. TUCATINIB [Suspect]
     Active Substance: TUCATINIB
     Indication: Breast cancer female
     Dosage: UNK
  2. TUCATINIB [Suspect]
     Active Substance: TUCATINIB
     Dosage: UNK
  3. TUCATINIB [Suspect]
     Active Substance: TUCATINIB
     Dosage: UNK
  4. TUCATINIB [Suspect]
     Active Substance: TUCATINIB
     Dosage: UNK

REACTIONS (16)
  - Brain neoplasm [Unknown]
  - Dry skin [Unknown]
  - Swelling [Unknown]
  - Hypersomnia [Unknown]
  - Urinary tract infection [Unknown]
  - Blood iron decreased [Unknown]
  - Skin discolouration [Unknown]
  - Memory impairment [Unknown]
  - Disease progression [Unknown]
  - Product dose omission issue [Unknown]
  - Blood potassium decreased [Unknown]
  - Rash erythematous [Unknown]
  - Erythema [Unknown]
  - Skin exfoliation [Unknown]
  - Diarrhoea [Unknown]
  - Nausea [Unknown]

NARRATIVE: CASE EVENT DATE: 20210317
